FAERS Safety Report 20322938 (Version 1)
Quarter: 2022Q1

REPORT INFORMATION
  Report Type: Spontaneous
  Country: DE (occurrence: DE)
  Receive Date: 20220111
  Receipt Date: 20220111
  Transmission Date: 20220423
  Serious: Yes (Congenital Anomaly)
  Sender: FDA-Public Use
  Company Number: DE-EMBRYOTOX-202007396

PATIENT
  Age: 5 Week
  Sex: Male

DRUGS (6)
  1. NEBIVOLOL [Suspect]
     Active Substance: NEBIVOLOL
     Indication: Hypertension
     Dosage: 5 [MG/D (1-0-0) ]/ OR UNTIL GW 8. NOT CLEAR.
     Route: 064
     Dates: start: 20200603, end: 20200705
  2. METOPROLOL [Suspect]
     Active Substance: METOPROLOL
     Indication: Hypertension
     Dosage: 47.5 [MG / D (BIS 28.75)] / OR FROM GW 8 UNTIL DELIVERY
     Route: 064
  3. METHYLDOPA [Concomitant]
     Active Substance: METHYLDOPA
     Indication: Hypertension
     Dosage: 500 MILLIGRAM DAILY; 500 [MG/D (2X250) ]
     Route: 064
  4. CLOMIPHENE [Concomitant]
     Active Substance: CLOMIPHENE
     Indication: Assisted fertilisation
     Route: 064
  5. PROGESTERONE [Concomitant]
     Active Substance: PROGESTERONE
     Indication: Assisted fertilisation
     Dosage: 400 MILLIGRAM DAILY; 400 [MG/D (200-0-200) ]
     Route: 064
  6. LEVOTHYROXINE SODIUM [Concomitant]
     Active Substance: LEVOTHYROXINE SODIUM
     Indication: Hypothyroidism
     Dosage: 50 MICROGRAM DAILY; 50 [MCG/D (BIS 25) ]
     Route: 064
     Dates: start: 20200603, end: 20210113

REACTIONS (2)
  - Congenital hydronephrosis [Unknown]
  - Foetal exposure during pregnancy [Unknown]

NARRATIVE: CASE EVENT DATE: 20200604
